FAERS Safety Report 6415209-5 (Version None)
Quarter: 2009Q4

REPORT INFORMATION
  Report Type: 
  Country: None (occurrence: None)
  Receive Date: 20091027
  Receipt Date: 20091022
  Transmission Date: 20100525
  Serious: Yes (Life-Threatening)
  Sender: FDA-Public Use
  Company Number: CA-SP-2009-02737

PATIENT
  Age: 67 Year
  Sex: Female

DRUGS (1)
  1. TUBERSOL [Suspect]
     Indication: TUBERCULIN TEST
     Route: 023
     Dates: start: 20060213

REACTIONS (6)
  - ANAPHYLACTIC REACTION [None]
  - DIZZINESS [None]
  - MUSCLE TWITCHING [None]
  - PARAESTHESIA ORAL [None]
  - PRESYNCOPE [None]
  - SWOLLEN TONGUE [None]
